FAERS Safety Report 9377153 (Version 1)
Quarter: 2013Q3

REPORT INFORMATION
  Report Type: Spontaneous
  Country: JP (occurrence: JP)
  Receive Date: 20130701
  Receipt Date: 20130701
  Transmission Date: 20140515
  Serious: Yes (Other)
  Sender: FDA-Public Use
  Company Number: JP-PFIZER INC-2013192830

PATIENT
  Age: 39 Year
  Sex: Male

DRUGS (2)
  1. CELECOX [Suspect]
     Dosage: 100 MG, 1X/DAY
     Route: 048
     Dates: start: 20130609, end: 20130610
  2. MUCOSTA [Suspect]
     Dosage: UNK
     Route: 048
     Dates: start: 20130609, end: 20130610

REACTIONS (5)
  - Pruritus [Unknown]
  - Urticaria [Unknown]
  - Joint swelling [Unknown]
  - Dyspnoea [Unknown]
  - Depressed level of consciousness [Unknown]
